FAERS Safety Report 5256360-5 (Version None)
Quarter: 2007Q1

REPORT INFORMATION
  Report Type: 
  Country: None (occurrence: None)
  Receive Date: 20070306
  Receipt Date: 20070223
  Transmission Date: 20070707
  Serious: Yes (Other)
  Sender: FDA-Public Use
  Company Number: BR-ROCHE-480387

PATIENT
  Age: 16 Year
  Sex: Male
  Weight: 54 kg

DRUGS (1)
  1. ISOTRETINOIN [Suspect]
     Indication: ACNE
     Route: 048
     Dates: start: 20061215, end: 20070121

REACTIONS (5)
  - BREAST MASS [None]
  - BREAST PAIN [None]
  - LYMPHOCYTE COUNT INCREASED [None]
  - SYNOVIAL CYST [None]
  - WHITE BLOOD CELL COUNT INCREASED [None]
